FAERS Safety Report 18270638 (Version 4)
Quarter: 2020Q4

REPORT INFORMATION
  Report Type: Report from Study
  Country: KR (occurrence: KR)
  Receive Date: 20200915
  Receipt Date: 20201016
  Transmission Date: 20210113
  Serious: Yes (Death)
  Sender: FDA-Public Use
  Company Number: KR-JNJFOC-A-CH2019-198493

PATIENT
  Age: 64 Year
  Sex: Male
  Weight: 51 kg

DRUGS (9)
  1. UPTRAVI [Suspect]
     Active Substance: SELEXIPAG
     Dosage: 800 UG, QD
     Route: 048
     Dates: start: 20191011, end: 20191013
  2. SILDENAFIL. [Concomitant]
     Active Substance: SILDENAFIL
     Indication: PULMONARY ARTERIAL HYPERTENSION
     Dosage: 60 MG, QD
     Route: 048
     Dates: start: 20181025
  3. UPTRAVI [Suspect]
     Active Substance: SELEXIPAG
     Dosage: 400UG AM, 600 UG PM
     Route: 048
     Dates: start: 20191010, end: 20191010
  4. UPTRAVI [Suspect]
     Active Substance: SELEXIPAG
     Dosage: 200 UG, PM
     Route: 048
     Dates: start: 20191023, end: 20191023
  5. UPTRAVI [Suspect]
     Active Substance: SELEXIPAG
     Indication: PULMONARY ARTERIAL HYPERTENSION
     Dosage: 400 UG, QD
     Route: 048
     Dates: start: 20190926, end: 20191009
  6. UPTRAVI [Suspect]
     Active Substance: SELEXIPAG
     Dosage: 400 UG, QD
     Route: 048
     Dates: start: 20191024
  7. UPTRAVI [Suspect]
     Active Substance: SELEXIPAG
     Indication: PULMONARY ARTERIAL HYPERTENSION
     Dosage: 200 UG, PM
     Route: 048
     Dates: start: 20190925
  8. UPTRAVI [Suspect]
     Active Substance: SELEXIPAG
     Dosage: 400 UG, QD
     Route: 048
     Dates: start: 20191014, end: 20191014
  9. AMBRISENTAN [Concomitant]
     Active Substance: AMBRISENTAN
     Indication: PULMONARY ARTERIAL HYPERTENSION
     Dosage: 10 MG, QD
     Route: 048
     Dates: start: 20171107

REACTIONS (4)
  - Headache [Unknown]
  - Rash [Unknown]
  - Pulmonary arterial hypertension [Fatal]
  - Myalgia [Unknown]

NARRATIVE: CASE EVENT DATE: 20191020
